FAERS Safety Report 5548214-1 (Version None)
Quarter: 2007Q4

REPORT INFORMATION
  Report Type: 
  Country: None (occurrence: None)
  Receive Date: 20071211
  Receipt Date: 20070315
  Transmission Date: 20080405
  Serious: No
  Sender: FDA-Public Use
  Company Number: US-AMGEN-KDL213439

PATIENT
  Sex: Female

DRUGS (11)
  1. ENBREL [Suspect]
     Indication: RHEUMATOID ARTHRITIS
     Route: 058
     Dates: start: 20011107
  2. NEXIUM [Concomitant]
  3. ASPIRIN [Concomitant]
     Route: 048
  4. PREDNISONE [Concomitant]
     Route: 048
  5. HYDROCODONE BITARTRATE + ACETAMINOPHEN [Concomitant]
     Route: 048
  6. LIPITOR [Concomitant]
     Route: 048
  7. FOSAMAX [Concomitant]
     Route: 048
  8. VITAMIN CAP [Concomitant]
     Route: 048
  9. CALCIUM WITH VITAMIN D [Concomitant]
     Route: 048
  10. TYLENOL [Concomitant]
     Route: 048
  11. AMOXICILLIN [Concomitant]
     Route: 048

REACTIONS (1)
  - HERPES ZOSTER [None]
